FAERS Safety Report 7745764-4 (Version None)
Quarter: 2011Q3

REPORT INFORMATION
  Report Type: 
  Country: None (occurrence: None)
  Receive Date: 20110830
  Receipt Date: 20110817
  Transmission Date: 20111222
  Serious: Yes (Other)
  Sender: FDA-Public Use
  Company Number: 2011SP039436

PATIENT
  Age: 36 Year
  Sex: Female

DRUGS (1)
  1. DESOGESTREL AND ETHINYL ESTRADIOL [Suspect]

REACTIONS (4)
  - MELAENA [None]
  - DYSPEPSIA [None]
  - HYPERCHLORHYDRIA [None]
  - GASTRITIS [None]
